FAERS Safety Report 11328776 (Version 1)
Quarter: 2015Q3

REPORT INFORMATION
  Report Type: Spontaneous
  Country: ES (occurrence: ES)
  Receive Date: 20150731
  Receipt Date: 20150731
  Transmission Date: 20151125
  Serious: Yes (Hospitalization)
  Sender: FDA-Public Use
  Company Number: ES-GILEAD-2015-0164993

PATIENT
  Age: 73 Year
  Sex: Male

DRUGS (10)
  1. OMEPRAZOL                          /00661201/ [Concomitant]
     Active Substance: OMEPRAZOLE
     Dates: start: 20140416
  2. AMLODIPINO                         /00972401/ [Concomitant]
     Active Substance: AMLODIPINE BESYLATE
     Route: 048
     Dates: start: 20140416
  3. ALDACTACINE [Concomitant]
     Active Substance: ALTHIAZIDE\SPIRONOLACTONE
     Dates: start: 20140416
  4. HARVONI [Suspect]
     Active Substance: LEDIPASVIR\SOFOSBUVIR
     Indication: PRODUCT USED FOR UNKNOWN INDICATION
     Dosage: UNK
     Route: 048
     Dates: start: 20150416, end: 20150626
  5. MINITRAN [Concomitant]
     Active Substance: NITROGLYCERIN
     Dates: start: 20140416
  6. URSOCHOL [Concomitant]
     Dates: start: 20140416
  7. CARVEDILOL. [Concomitant]
     Active Substance: CARVEDILOL
     Dates: start: 20140416
  8. LISINOPRIL. [Concomitant]
     Active Substance: LISINOPRIL
     Dates: start: 20140416
  9. ALOPURINOL [Concomitant]
     Active Substance: ALLOPURINOL
     Dates: start: 20140416
  10. FUROSEMIDE. [Concomitant]
     Active Substance: FUROSEMIDE
     Dates: start: 20140416

REACTIONS (1)
  - Erythrodermic psoriasis [Recovering/Resolving]

NARRATIVE: CASE EVENT DATE: 20150626
